FAERS Safety Report 16744226 (Version 2)
Quarter: 2022Q1

REPORT INFORMATION
  Report Type: Spontaneous
  Country: ES (occurrence: ES)
  Receive Date: 20190827
  Receipt Date: 20220221
  Transmission Date: 20220423
  Serious: Yes (Life-Threatening, Hospitalization, Other)
  Sender: FDA-Public Use
  Company Number: ES-AUROBINDO-AUR-APL-2019-054174

PATIENT
  Age: 65 Year
  Sex: Male

DRUGS (6)
  1. DEXKETOPROFEN [Interacting]
     Active Substance: DEXKETOPROFEN
     Indication: Pain
     Dosage: 75 MILLIGRAM, ONCE A DAY (75 MG, QD)
     Route: 048
     Dates: start: 20180615, end: 20180621
  2. ENALAPRIL [Interacting]
     Active Substance: ENALAPRIL
     Indication: Hypertension
     Dosage: 20 MILLIGRAM, ONCE A DAY (20 MG, QD)
     Route: 048
     Dates: end: 20180621
  3. TAMSULOSIN [Interacting]
     Active Substance: TAMSULOSIN
     Indication: Benign prostatic hyperplasia
     Dosage: 0.4 MILLIGRAM, ONCE A DAY (0.4 MG, QD)
     Route: 048
     Dates: start: 20180518, end: 20180621
  4. ENOXAPARIN SODIUM [Concomitant]
     Active Substance: ENOXAPARIN SODIUM
     Indication: Prophylaxis
     Dosage: 40 MILLIGRAM, ONCE A DAY (40 MG, QD)
     Route: 058
     Dates: start: 20180615, end: 20180615
  5. GLYBURIDE [Concomitant]
     Active Substance: GLYBURIDE
     Indication: Diabetes mellitus
     Dosage: 15 MILLIGRAM, ONCE A DAY (15 MG, QD 100 TABLETS)
     Route: 048
     Dates: end: 20180621
  6. METFORMIN [Concomitant]
     Active Substance: METFORMIN HYDROCHLORIDE
     Indication: Diabetes mellitus
     Dosage: 2.55 GRAM, ONCE A DAY (2.55 G, QD)
     Route: 048
     Dates: end: 20180621

REACTIONS (2)
  - Acute kidney injury [Recovering/Resolving]
  - Hyperkalaemia [Recovered/Resolved]

NARRATIVE: CASE EVENT DATE: 20180620
